FAERS Safety Report 5068231-8 (Version None)
Quarter: 2006Q3

REPORT INFORMATION
  Report Type: 
  Country: None (occurrence: None)
  Receive Date: 20060802
  Receipt Date: 20050614
  Transmission Date: 20061208
  Serious: No
  Sender: FDA-Public Use
  Company Number: US-BRISTOL-MYERS SQUIBB COMPANY-13002480

PATIENT
  Age: 81 Year
  Sex: Female
  Weight: 66 kg

DRUGS (7)
  1. COUMADIN [Suspect]
     Indication: THROMBOSIS
  2. AMARYL [Concomitant]
  3. ATENOLOL [Concomitant]
  4. FEMARA [Concomitant]
  5. GLUCOPHAGE [Concomitant]
  6. LESCOL [Concomitant]
  7. NORVASC [Concomitant]

REACTIONS (1)
  - PROTHROMBIN TIME PROLONGED [None]
